FAERS Safety Report 12269269 (Version 1)
Quarter: 2016Q2

REPORT INFORMATION
  Report Type: Report from Study
  Country: US (occurrence: US)
  Receive Date: 20160414
  Receipt Date: 20160414
  Transmission Date: 20160815
  Serious: Yes (Death, Hospitalization)
  Sender: FDA-Public Use
  Company Number: US-JNJFOC-20160123293

PATIENT
  Sex: Female
  Weight: 63 kg

DRUGS (18)
  1. CYANOCOBALAMIN. [Concomitant]
     Active Substance: CYANOCOBALAMIN
     Dosage: 1000 MCG BY MOUTH DAILY
     Route: 048
  2. ERGOCALCIFEROL. [Concomitant]
     Active Substance: ERGOCALCIFEROL
     Dosage: 50,000 UNITS ONCE A WEEK
  3. PEPCID [Concomitant]
     Active Substance: FAMOTIDINE
     Route: 048
  4. VFEND [Concomitant]
     Active Substance: VORICONAZOLE
  5. DEXAMETHASONE. [Concomitant]
     Active Substance: DEXAMETHASONE
     Route: 048
  6. IMBRUVICA [Suspect]
     Active Substance: IBRUTINIB
     Indication: CHRONIC LYMPHOCYTIC LEUKAEMIA
     Route: 048
     Dates: start: 20141112
  7. ASPIRIN. [Concomitant]
     Active Substance: ASPIRIN
  8. KEPPRA [Concomitant]
     Active Substance: LEVETIRACETAM
     Route: 048
  9. POTASSIUM CHLORIDE. [Concomitant]
     Active Substance: POTASSIUM CHLORIDE
     Dosage: 20 MEQ DAILY
     Route: 048
  10. LASIX [Concomitant]
     Active Substance: FUROSEMIDE
  11. ALBUTEROL SULFATE. [Concomitant]
     Active Substance: ALBUTEROL SULFATE
     Dosage: 2.5 MG, BY NEBULIZATION EVERY SIX HOURS PRN
  12. MAGNESIUM [Concomitant]
     Active Substance: MAGNESIUM
     Route: 048
  13. GLUCOPHAGE [Concomitant]
     Active Substance: METFORMIN HYDROCHLORIDE
  14. SODIUM POLYSTYRENE SULFONATE. [Concomitant]
     Active Substance: SODIUM POLYSTYRENE SULFONATE
  15. MIACALCIN [Concomitant]
     Active Substance: CALCITONIN SALMON
     Dosage: 200 SPRAYS
  16. FOLVITE [Concomitant]
     Active Substance: FOLIC ACID
  17. COZAAR [Concomitant]
     Active Substance: LOSARTAN POTASSIUM
     Route: 048
  18. PREDNISONE. [Concomitant]
     Active Substance: PREDNISONE
     Route: 048

REACTIONS (4)
  - Respiratory failure [Not Recovered/Not Resolved]
  - Aspergillus infection [Unknown]
  - Hypogammaglobulinaemia [Not Recovered/Not Resolved]
  - Respiratory syncytial virus infection [Fatal]
